FAERS Safety Report 12741860 (Version 2)
Quarter: 2016Q3

REPORT INFORMATION
  Report Type: Report from Study
  Country: US (occurrence: US)
  Receive Date: 20160914
  Receipt Date: 20160927
  Transmission Date: 20161109
  Serious: Yes (Other)
  Sender: FDA-Public Use
  Company Number: US-AMGEN-USASL2016104171

PATIENT
  Age: 72 Year
  Sex: Male
  Weight: 96.15 kg

DRUGS (2)
  1. REPATHA [Suspect]
     Active Substance: EVOLOCUMAB
     Indication: HYPERCHOLESTEROLAEMIA
     Dosage: 140 MG, Q2WK
     Route: 065
     Dates: start: 20160526, end: 20160805
  2. OMEGA 3 [Concomitant]
     Active Substance: OMEGA-3 FATTY ACIDS
     Indication: HYPERLIPIDAEMIA
     Route: 065

REACTIONS (6)
  - Chest discomfort [Recovered/Resolved]
  - Muscular weakness [Recovered/Resolved]
  - Arthralgia [Unknown]
  - Dizziness [Unknown]
  - Nausea [Unknown]
  - Vertigo [Recovered/Resolved]

NARRATIVE: CASE EVENT DATE: 2016
